FAERS Safety Report 12181466 (Version 2)
Quarter: 2016Q1

REPORT INFORMATION
  Report Type: Spontaneous
  Country: JP (occurrence: JP)
  Receive Date: 20160315
  Receipt Date: 20160321
  Transmission Date: 20160526
  Serious: Yes (Hospitalization)
  Sender: FDA-Public Use
  Company Number: PHJP2016JP005248

PATIENT
  Age: 46 Year
  Sex: Male

DRUGS (1)
  1. OCTREOTIDE, LONG ACTING [Suspect]
     Active Substance: OCTREOTIDE ACETATE
     Indication: PITUITARY TUMOUR BENIGN
     Dosage: UNK
     Route: 030

REACTIONS (8)
  - Headache [Unknown]
  - Rhinorrhoea [Unknown]
  - Septic shock [Unknown]
  - Altered state of consciousness [Unknown]
  - Nuchal rigidity [Unknown]
  - Cerebrospinal fluid leakage [Recovered/Resolved]
  - Pyrexia [Unknown]
  - Meningitis bacterial [Recovered/Resolved]
